FAERS Safety Report 6341556-1 (Version None)
Quarter: 2009Q3

REPORT INFORMATION
  Report Type: 
  Country: None (occurrence: None)
  Receive Date: 20090904
  Receipt Date: 20090903
  Transmission Date: 20100115
  Serious: Yes (Death, Hospitalization)
  Sender: FDA-Public Use
  Company Number: US-BRISTOL-MYERS SQUIBB COMPANY-14688329

PATIENT
  Age: 70 Year
  Sex: Female

DRUGS (3)
  1. ENTECAVIR [Suspect]
     Indication: HEPATITIS B
     Dosage: ENTECAVIR 0.5MG;1 D.F= 1 UNITS NOT SPECIFIED;COMPLETED 22-JUN,POST STUDY(FOLLOW UP PERIOD) SAME DRUG
     Route: 048
     Dates: start: 20070720, end: 20090620
  2. TENOFOVIR [Suspect]
     Indication: HEPATITIS B
     Dosage: TENOFOVIR 300MG;1 D.F= 1 UNITS NOT SPECIFIED;COMPLETED 22-JUN,POST STUDY(FOLLOW UP PERIOD) SAME DRUG
     Route: 048
     Dates: start: 20070720, end: 20090620
  3. CALCIUM [Concomitant]
     Dates: start: 20000101

REACTIONS (1)
  - HEPATITIS [None]
